FAERS Safety Report 11076443 (Version 1)
Quarter: 2015Q2

REPORT INFORMATION
  Report Type: Other
  Country: FR (occurrence: FR)
  Receive Date: 20150429
  Receipt Date: 20150429
  Transmission Date: 20150821
  Serious: Yes (Death, Hospitalization)
  Sender: FDA-Public Use
  Company Number: FR-CUBIST PHARMACEUTICALS, INC.-2015CBST000504

PATIENT

DRUGS (9)
  1. FUCIDINE                           /00065702/ [Suspect]
     Active Substance: FUSIDATE SODIUM
     Indication: STAPHYLOCOCCAL INFECTION
     Dosage: 250 MG, 2 TO 6/DAY
     Route: 048
     Dates: start: 20140807, end: 20140819
  2. LASILIX                            /00032601/ [Suspect]
     Active Substance: FUROSEMIDE
     Indication: PRODUCT USED FOR UNKNOWN INDICATION
     Dosage: 40-160 MG, UNK
     Route: 065
     Dates: end: 20140821
  3. GENTAMICIN. [Concomitant]
     Active Substance: GENTAMICIN
     Indication: STAPHYLOCOCCAL INFECTION
     Dosage: UNK UNK, UNK
     Route: 065
  4. XATRAL [Suspect]
     Active Substance: ALFUZOSIN
     Indication: STAPHYLOCOCCAL INFECTION
     Dosage: 10 MG, UNK
     Route: 048
     Dates: start: 20140729, end: 20140820
  5. CANCIDAS [Suspect]
     Active Substance: CASPOFUNGIN ACETATE
     Indication: STAPHYLOCOCCAL INFECTION
     Dosage: 70 MG, UNK
     Route: 065
     Dates: start: 20140807, end: 20140820
  6. CORDARONE [Suspect]
     Active Substance: AMIODARONE HYDROCHLORIDE
     Indication: PRODUCT USED FOR UNKNOWN INDICATION
     Dosage: 200 MG, UNK
     Route: 048
     Dates: end: 20140825
  7. CUBICIN [Suspect]
     Active Substance: DAPTOMYCIN
     Indication: STAPHYLOCOCCAL INFECTION
     Dosage: 500 MG, QD
     Route: 042
     Dates: start: 20140807, end: 20140824
  8. GENTAMICIN. [Concomitant]
     Active Substance: GENTAMICIN
     Indication: DEVICE RELATED INFECTION
  9. FLUCONAZOLE. [Concomitant]
     Active Substance: FLUCONAZOLE
     Indication: PRODUCT USED FOR UNKNOWN INDICATION
     Dosage: UNK UNK, UNK
     Route: 065

REACTIONS (2)
  - Hepatocellular injury [Not Recovered/Not Resolved]
  - Death [Fatal]
